FAERS Safety Report 21367880 (Version 7)
Quarter: 2022Q4

REPORT INFORMATION
  Report Type: Report from Study
  Country: US (occurrence: US)
  Receive Date: 20220923
  Receipt Date: 20221122
  Transmission Date: 20230112
  Serious: Yes (Death, Other)
  Sender: FDA-Public Use
  Company Number: US-HBP-2022US027407

PATIENT
  Age: 27 Year
  Sex: Male

DRUGS (3)
  1. TRUSELTIQ [Suspect]
     Active Substance: INFIGRATINIB
     Indication: Brain neoplasm malignant
     Dosage: 125 MILLIGRAM, DAILY FOR 21 DAYS
     Route: 048
     Dates: start: 202208, end: 20221005
  2. TRUSELTIQ [Suspect]
     Active Substance: INFIGRATINIB
     Dosage: 125 MILLIGRAM, DAILY FOR 21 DAYS
     Route: 048
     Dates: start: 20221010, end: 20221024
  3. DEXAMETHASONE [Suspect]
     Active Substance: DEXAMETHASONE
     Dosage: UNK, UNKNOWN

REACTIONS (11)
  - Disease progression [Fatal]
  - Blood phosphorus increased [Recovered/Resolved]
  - Rectal haemorrhage [Unknown]
  - Brain oedema [Unknown]
  - Lethargy [Recovered/Resolved]
  - Bradyphrenia [Recovered/Resolved]
  - Slow speech [Recovered/Resolved]
  - Off label use [Unknown]
  - Drug ineffective for unapproved indication [Unknown]
  - Alopecia [Not Recovered/Not Resolved]
  - Fatigue [Recovered/Resolved]

NARRATIVE: CASE EVENT DATE: 20221005
